FAERS Safety Report 13954320 (Version 1)
Quarter: 2017Q3

REPORT INFORMATION
  Report Type: Spontaneous
  Country: US (occurrence: US)
  Receive Date: 20170909
  Receipt Date: 20170909
  Transmission Date: 20171128
  Serious: Yes (Disabling)
  Sender: FDA-Public Use
  Company Number: None

PATIENT
  Age: 41 Year
  Sex: Female
  Weight: 90 kg

DRUGS (1)
  1. PEROX-A-MINT SOLUTION [Suspect]
     Active Substance: HYDROGEN PEROXIDE
     Indication: STOMATITIS
     Dosage: ?          OTHER STRENGTH:1.5 OUNCE;QUANTITY:1 OUNCE(S);?
     Route: 048

REACTIONS (4)
  - Dysgeusia [None]
  - Discomfort [None]
  - Sensory disturbance [None]
  - Oral pain [None]

NARRATIVE: CASE EVENT DATE: 20170820
